FAERS Safety Report 15699723 (Version 7)
Quarter: 2021Q2

REPORT INFORMATION
  Report Type: Other
  Country: CA (occurrence: CA)
  Receive Date: 20181207
  Receipt Date: 20210416
  Transmission Date: 20210716
  Serious: Yes (Other)
  Sender: FDA-Public Use
  Company Number: CA-ROCHE-2223859

PATIENT
  Age: 51 Year
  Sex: Female

DRUGS (7)
  1. DAPSONE. [Suspect]
     Active Substance: DAPSONE
     Indication: PRODUCT USED FOR UNKNOWN INDICATION
     Route: 065
  2. RANITIDINE. [Concomitant]
     Active Substance: RANITIDINE
  3. EFFEXOR [Concomitant]
     Active Substance: VENLAFAXINE HYDROCHLORIDE
     Dates: start: 201904
  4. GABAPENTIN. [Concomitant]
     Active Substance: GABAPENTIN
  5. OCREVUS [Suspect]
     Active Substance: OCRELIZUMAB
     Indication: RELAPSING-REMITTING MULTIPLE SCLEROSIS
     Dosage: 300 MG AT DAY 0 AND 14, THEN 600 MG EVERY 6 MONTH
     Route: 042
     Dates: start: 20181001
  6. BACLOFEN. [Concomitant]
     Active Substance: BACLOFEN
     Indication: MUSCLE SPASMS
  7. MELATONIN [Concomitant]
     Active Substance: MELATONIN

REACTIONS (6)
  - Macrocytosis [Not Recovered/Not Resolved]
  - Dysphagia [Not Recovered/Not Resolved]
  - Anaemia [Not Recovered/Not Resolved]
  - Platelet morphology abnormal [Not Recovered/Not Resolved]
  - Haemorrhage [Unknown]
  - Vitamin B12 deficiency [Not Recovered/Not Resolved]

NARRATIVE: CASE EVENT DATE: 20181116
